FAERS Safety Report 18266880 (Version 1)
Quarter: 2020Q3

REPORT INFORMATION
  Report Type: Spontaneous
  Country: JP (occurrence: JP)
  Receive Date: 20200915
  Receipt Date: 20200915
  Transmission Date: 20201103
  Serious: Yes (Other)
  Sender: FDA-Public Use
  Company Number: JP-FERRINGPH-2020FE06232

PATIENT

DRUGS (3)
  1. MINIRINMELT [Suspect]
     Active Substance: DESMOPRESSIN ACETATE
     Indication: DIABETES INSIPIDUS
     Dosage: 240 UG, DAILY (2 TABLETS MORNING AND EVENING)
     Route: 065
  2. MINIRINMELT [Suspect]
     Active Substance: DESMOPRESSIN ACETATE
     Dosage: 180 UG, DAILY (2 TABLETS IN THE MORNING, 1 TABLET IN THE EVENING)
     Route: 065
  3. DESMOPRESSIN KYOWA [Suspect]
     Active Substance: DESMOPRESSIN
     Indication: DIABETES INSIPIDUS
     Route: 065

REACTIONS (4)
  - Electrolyte imbalance [Unknown]
  - Recalled product administered [Unknown]
  - Pneumocephalus [Unknown]
  - Out of specification product use [Unknown]
